FAERS Safety Report 4288398-9 (Version None)
Quarter: 2004Q1

REPORT INFORMATION
  Report Type: 
  Country: None (occurrence: None)
  Receive Date: 20040209
  Receipt Date: 20030925
  Transmission Date: 20041129
  Serious: No
  Sender: FDA-Public Use
  Company Number: US-GLAXOSMITHKLINE-A0427551A

PATIENT
  Sex: Female

DRUGS (2)
  1. PAXIL [Suspect]
     Indication: ANXIETY
     Route: 048
     Dates: start: 20010101
  2. ZETIA [Suspect]
     Indication: THERAPEUTIC PROCEDURE
     Dates: start: 20030909

REACTIONS (2)
  - ANXIETY [None]
  - DRUG INTERACTION [None]
